FAERS Safety Report 11239720 (Version 1)
Quarter: 2015Q3

REPORT INFORMATION
  Report Type: Spontaneous
  Country: FR (occurrence: FR)
  Receive Date: 20150706
  Receipt Date: 20150706
  Transmission Date: 20151125
  Serious: Yes (Hospitalization)
  Sender: FDA-Public Use
  Company Number: PHHY2015FR079380

PATIENT
  Age: 69 Year
  Sex: Female

DRUGS (4)
  1. MOXIFLOXACINE [Concomitant]
     Indication: LUNG INFECTION
     Dosage: UNK
     Route: 065
     Dates: start: 201503
  2. LAMPRENE [Suspect]
     Active Substance: CLOFAZIMINE
     Indication: LUNG INFECTION
     Dosage: 50 MG, BID
     Route: 048
     Dates: start: 201503
  3. LAMPRENE [Suspect]
     Active Substance: CLOFAZIMINE
     Indication: MYCOBACTERIAL INFECTION
  4. MOXIFLOXACINE [Concomitant]
     Indication: MYCOBACTERIAL INFECTION

REACTIONS (4)
  - Malnutrition [Not Recovered/Not Resolved]
  - General physical health deterioration [Not Recovered/Not Resolved]
  - Vomiting [Not Recovered/Not Resolved]
  - Off label use [Not Recovered/Not Resolved]

NARRATIVE: CASE EVENT DATE: 201503
